FAERS Safety Report 5368381-2 (Version None)
Quarter: 2007Q2

REPORT INFORMATION
  Report Type: 
  Country: None (occurrence: None)
  Receive Date: 20070621
  Receipt Date: 20070605
  Transmission Date: 20071010
  Serious: Yes (Hospitalization)
  Sender: FDA-Public Use
  Company Number: B0474896A

PATIENT
  Age: 57 Year
  Sex: Male

DRUGS (1)
  1. CHLORPROMAZINE HYDROCHLORIDE [Suspect]
     Indication: HICCUPS
     Dosage: INTROVENOUS
     Route: 042

REACTIONS (7)
  - CONDITION AGGRAVATED [None]
  - EATING DISORDER [None]
  - EXTRAPYRAMIDAL DISORDER [None]
  - FATIGUE [None]
  - HICCUPS [None]
  - NAUSEA [None]
  - SLEEP DISORDER [None]
